FAERS Safety Report 21174613 (Version 4)
Quarter: 2022Q4

REPORT INFORMATION
  Report Type: Report from Study
  Country: US (occurrence: US)
  Receive Date: 20220805
  Receipt Date: 20221228
  Transmission Date: 20230113
  Serious: Yes (Other)
  Sender: FDA-Public Use
  Company Number: US-ABBVIE-22K-163-4384311-00

PATIENT
  Age: 62 Year
  Sex: Female
  Weight: 112 kg

DRUGS (9)
  1. HUMIRA [Suspect]
     Active Substance: ADALIMUMAB
     Indication: Hidradenitis
     Dosage: 40 MILLIGRAM?CITRATE FREE
     Route: 058
     Dates: start: 20210623
  2. HUMIRA [Suspect]
     Active Substance: ADALIMUMAB
     Dosage: CITRATE FREE?FIRS ADMINISTRATION DATE 2021
     Route: 058
     Dates: end: 202204
  3. HUMIRA [Suspect]
     Active Substance: ADALIMUMAB
     Dosage: CITRATE FREE; FIRST AND LAST ADMIN DATE WAS 2022
     Route: 058
  4. OZEMPIC [Concomitant]
     Active Substance: SEMAGLUTIDE
     Indication: Diabetes mellitus
  5. TRESIBA [Concomitant]
     Active Substance: INSULIN DEGLUDEC
     Indication: Diabetes mellitus
  6. LOSARTAN [Concomitant]
     Active Substance: LOSARTAN
     Indication: Hypertension
  7. LEXIPRON [Concomitant]
     Indication: Anxiety
  8. ESTRADIOL [Concomitant]
     Active Substance: ESTRADIOL
     Indication: Oestrogen replacement therapy
  9. HYDROCODONE [Concomitant]
     Active Substance: HYDROCODONE
     Indication: Pain

REACTIONS (4)
  - Osteoarthritis [Recovered/Resolved]
  - Hidradenitis [Unknown]
  - Hidradenitis [Not Recovered/Not Resolved]
  - Knee arthroplasty [Unknown]

NARRATIVE: CASE EVENT DATE: 20220401
